FAERS Safety Report 22149459 (Version 2)
Quarter: 2023Q2

REPORT INFORMATION
  Report Type: Spontaneous
  Country: US (occurrence: US)
  Receive Date: 20230329
  Receipt Date: 20230420
  Transmission Date: 20230721
  Serious: Yes (Death)
  Sender: FDA-Public Use
  Company Number: US-MTPC-MTDA2023-0008429

PATIENT
  Age: 75 Year
  Sex: Female

DRUGS (9)
  1. RADICAVA [Suspect]
     Active Substance: EDARAVONE
     Indication: Amyotrophic lateral sclerosis
     Dosage: 5 MILLILITER, QD 14 DAYS ON THEN 14 DAYS OFF
     Route: 050
     Dates: start: 20221219
  2. RADICAVA [Suspect]
     Active Substance: EDARAVONE
     Indication: Amyotrophic lateral sclerosis
     Dosage: 5 MILLILITER, QD 14 DAYS ON THEN 14 DAYS OFF
     Route: 050
     Dates: start: 20221219
  3. RADICAVA [Suspect]
     Active Substance: EDARAVONE
     Dosage: 5 MILLILITER, QD 10 DAYS THEN OFF 14 DAYS
     Route: 050
     Dates: end: 20230319
  4. RADICAVA [Suspect]
     Active Substance: EDARAVONE
     Dosage: 5 MILLILITER, QD 10 DAYS THEN OFF 14 DAYS
     Route: 050
     Dates: end: 20230319
  5. BACLOFEN [Concomitant]
     Active Substance: BACLOFEN
     Indication: Muscle spasms
     Dosage: 5-10- MG Q6HR PRN
     Route: 065
  6. NUEDEXTA [Concomitant]
     Active Substance: DEXTROMETHORPHAN HYDROBROMIDE\QUINIDINE SULFATE
     Indication: Product used for unknown indication
     Dosage: 20-10 MG QAM
     Route: 048
  7. RILUZOLE [Concomitant]
     Active Substance: RILUZOLE
     Indication: Product used for unknown indication
     Dosage: 50 MILLIGRAM, BID
     Route: 048
  8. PROLIA [Concomitant]
     Active Substance: DENOSUMAB
     Indication: Product used for unknown indication
     Dosage: 60 MILLIGRAM, Q6MONTHS
     Route: 058
  9. LEVOTHYROXINE [Concomitant]
     Active Substance: LEVOTHYROXINE
     Indication: Product used for unknown indication
     Dosage: 75 MICROGRAM, QD
     Route: 048

REACTIONS (1)
  - Death [Fatal]

NARRATIVE: CASE EVENT DATE: 20230321
